FAERS Safety Report 7663346-X (Version None)
Quarter: 2011Q3

REPORT INFORMATION
  Report Type: 
  Country: None (occurrence: None)
  Receive Date: 20110805
  Receipt Date: 20100831
  Transmission Date: 20111222
  Serious: No
  Sender: FDA-Public Use
  Company Number: US-ABBOTT-10P-163-0667672-00

PATIENT
  Sex: Male
  Weight: 79.45 kg

DRUGS (3)
  1. ASPIRIN [Concomitant]
     Indication: PRODUCT USED FOR UNKNOWN INDICATION
  2. NIASPAN [Suspect]
     Indication: PRODUCT USED FOR UNKNOWN INDICATION
     Dosage: AT BEDTIME
     Dates: start: 20100801
  3. ACIPHEX [Concomitant]
     Indication: PRODUCT USED FOR UNKNOWN INDICATION

REACTIONS (5)
  - DYSPNOEA [None]
  - FEELING JITTERY [None]
  - GASTROOESOPHAGEAL REFLUX DISEASE [None]
  - PALPITATIONS [None]
  - OESOPHAGEAL PAIN [None]
